FAERS Safety Report 8206892-2 (Version None)
Quarter: 2012Q1

REPORT INFORMATION
  Report Type: 
  Country: None (occurrence: None)
  Receive Date: 20120308
  Receipt Date: 20120301
  Transmission Date: 20120608
  Serious: Yes (Other)
  Sender: FDA-Public Use
  Company Number: 2012031469

PATIENT
  Age: 82 Year
  Sex: Female

DRUGS (5)
  1. NEXIUM [Concomitant]
  2. PRAVASTATIN [Concomitant]
  3. ARIXTRA [Concomitant]
  4. PRIVIGEN [Suspect]
     Indication: GUILLAIN-BARRE SYNDROME
     Dosage: 400 MG/KG QD INTRAVENOUS (NOT OTHERWISE SPECIFIED)
     Route: 042
     Dates: start: 20120118, end: 20120120
  5. CO-ENATEC (VASERETIC) [Concomitant]

REACTIONS (2)
  - LEUKOPENIA [None]
  - CONDITION AGGRAVATED [None]
